FAERS Safety Report 7435127-3 (Version None)
Quarter: 2011Q2

REPORT INFORMATION
  Report Type: 
  Country: None (occurrence: None)
  Receive Date: 20110425
  Receipt Date: 20110419
  Transmission Date: 20111010
  Serious: Yes (Hospitalization)
  Sender: FDA-Public Use
  Company Number: FR-ABBOTT-11P-056-0720416-00

PATIENT
  Age: 50 Year
  Sex: Male

DRUGS (7)
  1. MOXIFLOXACIN [Suspect]
     Indication: TUBERCULOSIS
     Dosage: DAILY DOSE: 400MG
     Route: 048
     Dates: start: 20101203, end: 20110103
  2. DEPAKENE [Suspect]
     Indication: EPILEPSY
     Route: 048
     Dates: start: 20101230, end: 20110103
  3. RIMIFON [Suspect]
     Indication: TUBERCULOSIS
     Route: 048
     Dates: start: 20101203, end: 20110103
  4. DEPAKENE [Suspect]
     Route: 048
     Dates: end: 20101130
  5. SULFAMETHOXAZOLE W/TRIMETHOPRIM [Suspect]
     Indication: PRODUCT USED FOR UNKNOWN INDICATION
     Route: 048
     Dates: start: 20101203, end: 20110103
  6. MYAMBUTOL [Suspect]
     Indication: TUBERCULOSIS
     Route: 048
     Dates: start: 20101203, end: 20110103
  7. MYAMBUTOL [Suspect]
     Route: 048
     Dates: start: 20101123, end: 20101130

REACTIONS (1)
  - GENERALISED ERYTHEMA [None]
